FAERS Safety Report 6288731-2 (Version None)
Quarter: 2009Q3

REPORT INFORMATION
  Report Type: 
  Country: None (occurrence: None)
  Receive Date: 20090729
  Receipt Date: 20090720
  Transmission Date: 20100115
  Serious: Yes (Congenital Anomaly)
  Sender: FDA-Public Use
  Company Number: GB-CELGENEUS-167-20484-09071785

PATIENT
  Sex: Female

DRUGS (1)
  1. INNOHEP [Suspect]

REACTIONS (4)
  - GROWTH RETARDATION [None]
  - JAUNDICE [None]
  - NEONATAL RESPIRATORY DISTRESS SYNDROME [None]
  - THROMBOCYTOPENIA [None]
